FAERS Safety Report 5477630-1 (Version None)
Quarter: 2007Q4

REPORT INFORMATION
  Report Type: 
  Country: None (occurrence: None)
  Receive Date: 20071002
  Receipt Date: 20070917
  Transmission Date: 20080405
  Serious: Yes (Hospitalization)
  Sender: FDA-Public Use
  Company Number: 2007EU002071

PATIENT
  Age: 49 Year
  Sex: Female
  Weight: 63 kg

DRUGS (3)
  1. TACROLIMUS [Suspect]
     Indication: RENAL TRANSPLANT
     Dosage: 18 MG, BID, ORAL, ORAL
     Route: 048
     Dates: start: 20070914
  2. CELLCEPT [Concomitant]
  3. PREDNISONE [Concomitant]

REACTIONS (3)
  - IMPAIRED HEALING [None]
  - POSTOPERATIVE WOUND COMPLICATION [None]
  - WOUND SECRETION [None]
